FAERS Safety Report 7605020 (Version 4)
Quarter: 2013Q2

REPORT INFORMATION
  Report Type: Spontaneous
  Country: US (occurrence: US)
  Receive Date: 20100924
  Receipt Date: 20130610
  Transmission Date: 20140414
  Serious: Yes (Hospitalization, Other)
  Sender: FDA-Public Use
  Company Number: US-BAYER-201034275NA

PATIENT
  Age: 30 Year
  Sex: Female
  Weight: 63.49 kg

DRUGS (8)
  1. YAZ [Suspect]
     Indication: ORAL CONTRACEPTION
     Dosage: UNK UNK, UNK
     Route: 048
     Dates: start: 200802, end: 20080901
  2. YAZ [Suspect]
     Indication: PREMENSTRUAL SYNDROME
  3. YAZ [Suspect]
     Indication: ACNE
  4. YAZ [Suspect]
     Indication: AFFECTIVE DISORDER
  5. YAZ [Suspect]
     Indication: DYSMENORRHOEA
  6. YAZ [Suspect]
     Indication: MENSTRUAL CYCLE MANAGEMENT
  7. OCELLA [Suspect]
  8. LEXAPRO [Concomitant]

REACTIONS (9)
  - Pulmonary embolism [Recovered/Resolved]
  - Abortion induced [None]
  - Fear of disease [None]
  - Dyspnoea [Recovered/Resolved]
  - Dizziness [Recovered/Resolved]
  - Pleuritic pain [Recovered/Resolved]
  - Malaise [Recovered/Resolved]
  - Cough [Recovered/Resolved]
  - Influenza like illness [Recovered/Resolved]
